FAERS Safety Report 6234837-3 (Version None)
Quarter: 2009Q2

REPORT INFORMATION
  Report Type: 
  Country: None (occurrence: None)
  Receive Date: 20090618
  Receipt Date: 20090611
  Transmission Date: 20091009
  Serious: Yes (Hospitalization, Other)
  Sender: FDA-Public Use
  Company Number: JP-MERCK-0906USA01697

PATIENT
  Age: 92 Year
  Sex: Male

DRUGS (6)
  1. COZAAR [Suspect]
     Indication: HYPERTENSION
     Route: 048
     Dates: start: 20090301
  2. WARFARIN POTASSIUM [Concomitant]
     Route: 048
  3. ALOSITOL [Suspect]
     Indication: HYPERURICAEMIA
     Route: 048
     Dates: start: 20090529, end: 20090605
  4. LASIX [Concomitant]
     Route: 065
  5. RIFAMPIN [Concomitant]
     Indication: TUBERCULOSIS
     Route: 048
  6. ETHAMBUTOL HYDROCHLORIDE [Concomitant]
     Indication: TUBERCULOSIS
     Route: 048

REACTIONS (2)
  - MYOCARDIAL INFARCTION [None]
  - RHABDOMYOLYSIS [None]
